FAERS Safety Report 7728940-6 (Version None)
Quarter: 2011Q3

REPORT INFORMATION
  Report Type: 
  Country: None (occurrence: None)
  Receive Date: 20110906
  Receipt Date: 20110826
  Transmission Date: 20111222
  Serious: Yes (Hospitalization)
  Sender: FDA-Public Use
  Company Number: US-US-EMD SERONO, INC.-7071106

PATIENT
  Sex: Male

DRUGS (3)
  1. REBIF [Suspect]
     Indication: PRODUCT USED FOR UNKNOWN INDICATION
     Route: 058
     Dates: start: 20110415
  2. REBIF [Suspect]
     Route: 058
     Dates: start: 20110826
  3. VITAMIN TAB [Concomitant]

REACTIONS (3)
  - PERONEAL NERVE PALSY [None]
  - ABASIA [None]
  - INFECTION [None]
